FAERS Safety Report 20725674 (Version 1)
Quarter: 2022Q2

REPORT INFORMATION
  Report Type: Spontaneous
  Country: IT (occurrence: IT)
  Receive Date: 20220419
  Receipt Date: 20220419
  Transmission Date: 20220721
  Serious: Yes (Other)
  Sender: FDA-Public Use
  Company Number: IT-MYLANLABS-2022M1027706

PATIENT
  Age: 27 Year
  Sex: Female

DRUGS (2)
  1. PREDNISONE [Suspect]
     Active Substance: PREDNISONE
     Indication: Urticarial vasculitis
     Dosage: 37.5 MILLIGRAM, QD (TAPERED)
     Route: 048
  2. CLARITHROMYCIN [Concomitant]
     Active Substance: CLARITHROMYCIN
     Indication: Urticarial vasculitis
     Dosage: UNK, SHORT COURSE
     Route: 065

REACTIONS (1)
  - Drug ineffective [Unknown]
